FAERS Safety Report 23284432 (Version 1)
Quarter: 2023Q4

REPORT INFORMATION
  Report Type: Spontaneous
  Country: ES (occurrence: ES)
  Receive Date: 20231211
  Receipt Date: 20231211
  Transmission Date: 20240110
  Serious: Yes (Other)
  Sender: FDA-Public Use
  Company Number: ES-CELLTRION HEALTHCARE HUNGARY KFT-2023ES014498

PATIENT
  Age: 22 Year
  Sex: Female

DRUGS (5)
  1. ADALIMUMAB [Suspect]
     Active Substance: ADALIMUMAB\ISOPROPYL ALCOHOL
     Indication: Hidradenitis
     Dosage: 80 MG, Q2W
     Route: 058
  2. ADALIMUMAB [Suspect]
     Active Substance: ADALIMUMAB\ISOPROPYL ALCOHOL
     Indication: Mevalonate kinase deficiency
     Dosage: 80 MG, Q2W
     Route: 065
  3. CANAKINUMAB [Suspect]
     Active Substance: CANAKINUMAB
     Indication: Mevalonate kinase deficiency
     Dosage: 150 MG, Q4W
     Route: 065
  4. CANAKINUMAB [Suspect]
     Active Substance: CANAKINUMAB
     Dosage: UNK
     Route: 065
  5. KINERET [Concomitant]
     Active Substance: ANAKINRA
     Indication: Hidradenitis
     Dosage: 100 MG, QD
     Route: 065

REACTIONS (3)
  - Hidradenitis [Not Recovered/Not Resolved]
  - Symptom recurrence [Unknown]
  - Intentional product use issue [Unknown]
